FAERS Safety Report 24247638 (Version 1)
Quarter: 2024Q3

REPORT INFORMATION
  Report Type: Report from Study
  Country: US (occurrence: US)
  Receive Date: 20240826
  Receipt Date: 20240826
  Transmission Date: 20241017
  Serious: Yes (Hospitalization)
  Sender: TAKEDA
  Company Number: US-TAKEDA-2024TUS083858

PATIENT
  Sex: Male

DRUGS (1)
  1. FRUQUINTINIB [Suspect]
     Active Substance: FRUQUINTINIB
     Indication: Bone cancer
     Dosage: 5 MILLIGRAM
     Route: 048
     Dates: start: 20240722

REACTIONS (3)
  - Hospitalisation [Unknown]
  - Diarrhoea [Recovering/Resolving]
  - Off label use [Unknown]
